FAERS Safety Report 12562796 (Version 4)
Quarter: 2016Q3

REPORT INFORMATION
  Report Type: Spontaneous
  Country: US (occurrence: US)
  Receive Date: 20160715
  Receipt Date: 20160927
  Transmission Date: 20161109
  Serious: No
  Sender: FDA-Public Use
  Company Number: US-BEH-2016062211

PATIENT
  Age: 54 Year
  Sex: Female
  Weight: 97.7 kg

DRUGS (31)
  1. PREDNISONE. [Concomitant]
     Active Substance: PREDNISONE
  2. METHYLPREDNISONE [Concomitant]
     Active Substance: METHYLPREDNISOLONE
  3. HYDROXYCHLOROQUINE [Concomitant]
     Active Substance: HYDROXYCHLOROQUINE
  4. TRIAMCINOLONE [Concomitant]
     Active Substance: TRIAMCINOLONE
  5. OS CAL [Concomitant]
  6. GABAPENTIN. [Concomitant]
     Active Substance: GABAPENTIN
  7. NEXIUM [Concomitant]
     Active Substance: ESOMEPRAZOLE MAGNESIUM
  8. HIZENTRA [Suspect]
     Active Substance: HUMAN IMMUNOGLOBULIN G
     Dosage: UNK
     Route: 058
  9. SULFASALAZINE. [Concomitant]
     Active Substance: SULFASALAZINE
  10. NAPROXEN. [Concomitant]
     Active Substance: NAPROXEN
  11. MELOXICAM. [Concomitant]
     Active Substance: MELOXICAM
  12. PRAVACHOL [Concomitant]
     Active Substance: PRAVASTATIN SODIUM
  13. HYDROCHLORTHIAZIDE [Concomitant]
     Active Substance: HYDROCHLOROTHIAZIDE
  14. HIZENTRA [Suspect]
     Active Substance: HUMAN IMMUNOGLOBULIN G
     Dosage: UNK
     Route: 058
  15. ATROVENT [Concomitant]
     Active Substance: IPRATROPIUM BROMIDE
  16. ERYTHROMYCIN. [Concomitant]
     Active Substance: ERYTHROMYCIN
  17. CETIRIZINE [Concomitant]
     Active Substance: CETIRIZINE HYDROCHLORIDE
  18. PROZAC [Concomitant]
     Active Substance: FLUOXETINE HYDROCHLORIDE
  19. HIZENTRA [Suspect]
     Active Substance: HUMAN IMMUNOGLOBULIN G
     Dosage: 15 G, QW
     Route: 058
     Dates: start: 20140320
  20. MUPIROCIN. [Concomitant]
     Active Substance: MUPIROCIN
  21. FISH OIL [Concomitant]
     Active Substance: FISH OIL
  22. ASTELIN [Concomitant]
     Active Substance: AZELASTINE HYDROCHLORIDE
  23. LASIX [Concomitant]
     Active Substance: FUROSEMIDE
  24. VORTEX [Concomitant]
     Active Substance: SODIUM FLUORIDE
  25. HIZENTRA [Suspect]
     Active Substance: HUMAN IMMUNOGLOBULIN G
     Indication: IMMUNODEFICIENCY COMMON VARIABLE
     Dosage: UNK
     Route: 058
  26. SINGULAIR [Concomitant]
     Active Substance: MONTELUKAST SODIUM
  27. LOSARTAN. [Concomitant]
     Active Substance: LOSARTAN
  28. PROVENTIL [Concomitant]
     Active Substance: ALBUTEROL
  29. DULERA [Concomitant]
     Active Substance: FORMOTEROL FUMARATE DIHYDRATE\MOMETASONE FUROATE
  30. FLONASE [Concomitant]
     Active Substance: FLUTICASONE PROPIONATE
  31. POTASSIUM [Concomitant]
     Active Substance: POTASSIUM

REACTIONS (5)
  - Sleep apnoea syndrome [Unknown]
  - Chest pain [Unknown]
  - Infection [Unknown]
  - Animal scratch [Unknown]
  - Costochondritis [Unknown]

NARRATIVE: CASE EVENT DATE: 201601
